FAERS Safety Report 21546113 (Version 2)
Quarter: 2022Q4

REPORT INFORMATION
  Report Type: Spontaneous
  Country: US (occurrence: US)
  Receive Date: 20221103
  Receipt Date: 20221110
  Transmission Date: 20230112
  Serious: No
  Sender: FDA-Public Use
  Company Number: US-SA-SAC20221030000631

PATIENT
  Age: 41 Year
  Sex: Female
  Weight: 58 kg

DRUGS (2)
  1. KEVZARA [Suspect]
     Active Substance: SARILUMAB
     Indication: Rheumatoid arthritis
     Dosage: 150 MG, QOW
     Route: 058
     Dates: start: 201910
  2. NYSTATIN [Concomitant]
     Active Substance: NYSTATIN

REACTIONS (7)
  - Oropharyngeal pain [Unknown]
  - Glossodynia [Unknown]
  - Oral pain [Unknown]
  - Rash [Unknown]
  - Skin discolouration [Unknown]
  - Oral candidiasis [Unknown]
  - Incorrect dose administered [Unknown]

NARRATIVE: CASE EVENT DATE: 20221025
